FAERS Safety Report 7388833-3 (Version None)
Quarter: 2011Q1

REPORT INFORMATION
  Report Type: 
  Country: None (occurrence: None)
  Receive Date: 20110329
  Receipt Date: 20110329
  Transmission Date: 20110831
  Serious: Yes (Hospitalization)
  Sender: FDA-Public Use
  Company Number: None

PATIENT
  Age: 38 Year
  Sex: Female
  Weight: 79.8331 kg

DRUGS (1)
  1. TYSABRI [Suspect]
     Indication: MULTIPLE SCLEROSIS
     Dosage: 300 MG MONTHLY IV
     Route: 042
     Dates: start: 20110301

REACTIONS (3)
  - ATAXIA [None]
  - CONFUSIONAL STATE [None]
  - HALLUCINATION [None]
